FAERS Safety Report 9768092 (Version 1)
Quarter: 2013Q4

REPORT INFORMATION
  Report Type: Spontaneous
  Country: US (occurrence: US)
  Receive Date: 20131217
  Receipt Date: 20131217
  Transmission Date: 20140711
  Serious: Yes (Hospitalization, Other)
  Sender: FDA-Public Use
  Company Number: US-PFIZER INC-2013358815

PATIENT
  Age: 62 Year
  Sex: Female

DRUGS (10)
  1. AZOR [Suspect]
     Indication: HYPERTENSION
     Dosage: UNK, PRN
     Route: 048
     Dates: end: 20131019
  2. FLUOROURACIL [Suspect]
     Indication: METASTATIC GASTRIC CANCER
     Dosage: UNKNOWN (6440 MG,1 IN 21 D)
     Route: 041
     Dates: start: 20130308, end: 20130313
  3. FLUOROURACIL [Suspect]
     Dosage: UNKNOWN (4830 MG,1 IN 21 D)
     Route: 041
     Dates: start: 20130329
  4. CISPLATIN [Suspect]
     Indication: METASTATIC GASTRIC CANCER
     Dosage: UNKNOWN (129 MG,1 IN 21 D)
     Route: 041
     Dates: start: 20130308, end: 20130308
  5. CISPLATIN [Suspect]
     Dosage: UNKNOWN (97 MG,1 IN 21 D)
     Route: 041
     Dates: start: 20130329, end: 20130718
  6. ZOFRAN [Concomitant]
     Indication: NAUSEA
     Dosage: UNK, (PRN)
     Route: 048
     Dates: start: 20130309
  7. ZOFRAN [Concomitant]
     Indication: VOMITING
  8. ZOFRAN [Concomitant]
     Indication: PROPHYLAXIS OF NAUSEA AND VOMITING
  9. NEXIUM [Concomitant]
     Indication: GASTROOESOPHAGEAL REFLUX DISEASE
     Dosage: UNKNOWN (PRN)
     Route: 048
     Dates: start: 20130313
  10. INFLUENZA VACCINE [Concomitant]
     Indication: PROPHYLAXIS
     Dosage: UNK
     Dates: start: 20131009, end: 20131009

REACTIONS (7)
  - Dehydration [Recovered/Resolved]
  - Syncope [Recovered/Resolved]
  - Nausea [Recovered/Resolved]
  - Vomiting [Recovered/Resolved]
  - Hypotension [Recovered/Resolved]
  - Blood creatinine increased [Unknown]
  - Sinus bradycardia [Unknown]
